FAERS Safety Report 25486275 (Version 2)
Quarter: 2025Q3

REPORT INFORMATION
  Report Type: Report from Study
  Country: GB (occurrence: GB)
  Receive Date: 20250626
  Receipt Date: 20250704
  Transmission Date: 20251020
  Serious: No
  Sender: ABBVIE
  Company Number: GB-ABBVIE-6301214

PATIENT
  Age: 70 Year
  Sex: Male

DRUGS (1)
  1. RINVOQ [Suspect]
     Active Substance: UPADACITINIB
     Indication: Dermatitis
     Dosage: FORM STRENGTH: 15 MG?28 TABLET 4 X 7 TABLETS
     Route: 048
     Dates: end: 20250518

REACTIONS (5)
  - Hernia [Not Recovered/Not Resolved]
  - Purulence [Not Recovered/Not Resolved]
  - Dermatitis [Unknown]
  - Stress [Unknown]
  - Eczema [Unknown]

NARRATIVE: CASE EVENT DATE: 20250101
